FAERS Safety Report 24612017 (Version 2)
Quarter: 2025Q3

REPORT INFORMATION
  Report Type: Report from Study
  Country: US (occurrence: US)
  Receive Date: 20241113
  Receipt Date: 20250810
  Transmission Date: 20251020
  Serious: Yes (Other)
  Sender: ALEXION PHARMACEUTICALS
  Company Number: US-AstraZeneca-CH-00736205A

PATIENT
  Sex: Male

DRUGS (1)
  1. ACALABRUTINIB [Suspect]
     Active Substance: ACALABRUTINIB
     Indication: Waldenstrom^s macroglobulinaemia
     Dosage: 200 MILLIGRAM, BID
     Dates: start: 20240826

REACTIONS (4)
  - Bipolar disorder [Unknown]
  - Laboratory test abnormal [Unknown]
  - Parkinsonism [Unknown]
  - Product dose omission issue [Unknown]
